FAERS Safety Report 19423032 (Version 1)
Quarter: 2021Q2

REPORT INFORMATION
  Report Type: Spontaneous
  Country: NL (occurrence: NL)
  Receive Date: 20210616
  Receipt Date: 20210616
  Transmission Date: 20210717
  Serious: Yes (Other)
  Sender: FDA-Public Use
  Company Number: NL-TEVA-2021-NL-1921485

PATIENT
  Age: 37 Year
  Sex: Female
  Weight: 71 kg

DRUGS (2)
  1. BECLOMETASON NEUSSPRAY 50UG/DO / BRAND NAME NOT SPECIFIED [Suspect]
     Active Substance: BECLOMETHASONE DIPROPIONATE
     Dosage: 2X A DAY 1?2 SPRAYS , THERAPY END DATE : ASKU
     Dates: start: 20210422
  2. ETHINYLESTRADIOL/LEVONORGESTREL TABLET 30/150UG / BRAND NAME NOT SPECI [Concomitant]
     Active Substance: ETHINYL ESTRADIOL\LEVONORGESTREL
     Dosage: 0.03/0.15MG , THERAPY START DATE AND END DATE : ASKU

REACTIONS (2)
  - Syncope [Recovered/Resolved]
  - Malaise [Recovered/Resolved]

NARRATIVE: CASE EVENT DATE: 20210501
